FAERS Safety Report 9444055 (Version 1)
Quarter: 2013Q3

REPORT INFORMATION
  Report Type: Spontaneous
  Country: US (occurrence: None)
  Receive Date: 20130806
  Receipt Date: 20130806
  Transmission Date: 20140515
  Serious: Yes (Other)
  Sender: FDA-Public Use
  Company Number: None

PATIENT
  Age: 73 Year
  Sex: Male
  Weight: 65.9 kg

DRUGS (2)
  1. LAMOTRIGINE [Suspect]
     Indication: BIPOLAR DISORDER
  2. TEMAZEPAM [Concomitant]
     Indication: BIPOLAR DISORDER
     Dosage: LAMOTRAGINE 100 MG AND 200 MG QD PO
     Route: 048

REACTIONS (2)
  - Paralysis [None]
  - Fall [None]
